FAERS Safety Report 14368807 (Version 1)
Quarter: 2018Q1

REPORT INFORMATION
  Report Type: Spontaneous
  Country: US (occurrence: US)
  Receive Date: 20180109
  Receipt Date: 20180109
  Transmission Date: 20180509
  Serious: No
  Sender: FDA-Public Use
  Company Number: US-PFIZER INC-2018003236

PATIENT
  Age: 8 Year
  Sex: Male
  Weight: 26.76 kg

DRUGS (1)
  1. QUILLIVANT XR [Suspect]
     Active Substance: METHYLPHENIDATE HYDROCHLORIDE
     Indication: AUTISM SPECTRUM DISORDER
     Dosage: 25MG/5ML , 1X/DAY
     Route: 048
     Dates: start: 2016

REACTIONS (5)
  - Product use in unapproved indication [Unknown]
  - Psychomotor hyperactivity [Recovered/Resolved]
  - Intentional product use issue [Recovered/Resolved]
  - Drug dose omission [Recovered/Resolved]
  - Therapeutic response unexpected [Unknown]

NARRATIVE: CASE EVENT DATE: 201712
